FAERS Safety Report 18740821 (Version 3)
Quarter: 2022Q1

REPORT INFORMATION
  Report Type: Spontaneous
  Country: FR (occurrence: FR)
  Receive Date: 20210114
  Receipt Date: 20220211
  Transmission Date: 20220423
  Serious: Yes (Other)
  Sender: FDA-Public Use
  Company Number: FR-TEVA-2021-FR-1867241

PATIENT
  Age: 6 Decade
  Sex: Female

DRUGS (13)
  1. CABERGOLINE [Suspect]
     Active Substance: CABERGOLINE
     Indication: Pituitary cancer metastatic
     Dosage: 2MG FOR 5 MONTHS
     Route: 065
     Dates: start: 2015, end: 2016
  2. IPILIMUMAB [Suspect]
     Active Substance: IPILIMUMAB
     Indication: Pituitary cancer metastatic
     Dosage: RECEIVED 5 CYCLES
     Route: 065
     Dates: start: 201902, end: 201905
  3. NIVOLUMAB [Suspect]
     Active Substance: NIVOLUMAB
     Indication: Pituitary cancer metastatic
     Dosage: RECEIVED 5 CYCLES WITH IPILIMUMAB
     Route: 065
     Dates: start: 201902, end: 201905
  4. NIVOLUMAB [Suspect]
     Active Substance: NIVOLUMAB
     Indication: Pituitary cancer metastatic
     Dosage: RECEIVED 21 CYCLES OF MONOTHERAPY
     Route: 065
     Dates: start: 201905
  5. TEMOZOLOMIDE [Suspect]
     Active Substance: TEMOZOLOMIDE
     Indication: Pituitary cancer metastatic
     Dosage: 250-270 MG/DAY FOR 5 DAYS EVERY 4-5 WEEKS; RECEIVED 10 CYCLES
     Route: 065
     Dates: start: 2009, end: 2010
  6. TEMOZOLOMIDE [Suspect]
     Active Substance: TEMOZOLOMIDE
     Indication: Pituitary cancer metastatic
     Dosage: 250MG/DAY FOR 5 DAYS REPEATED EVERY 5 WEEKS; RECEIVED 3 CYCLES
     Route: 065
     Dates: start: 2013, end: 2013
  7. PASIREOTIDE [Suspect]
     Active Substance: PASIREOTIDE
     Indication: Pituitary cancer metastatic
     Dosage: 1.8 MILLIGRAM DAILY;
     Route: 065
     Dates: start: 2015, end: 2015
  8. HYDROXYUREA [Suspect]
     Active Substance: HYDROXYUREA
     Indication: Pituitary cancer metastatic
     Dosage: 1500 MILLIGRAM DAILY;
     Route: 065
     Dates: start: 2016, end: 2017
  9. METYRAPONE [Suspect]
     Active Substance: METYRAPONE
     Indication: Pituitary cancer metastatic
     Dosage: 1000-3000 MG/DAY
     Route: 065
     Dates: start: 201508, end: 201812
  10. MITOTANE [Suspect]
     Active Substance: MITOTANE
     Indication: Hyperadrenocorticism
     Dosage: STARTED PRIOR TO BIOCHEMICAL REMISSION INDUCED BY TEMOZOLOMIDE
     Route: 065
  11. MITOTANE [Suspect]
     Active Substance: MITOTANE
     Indication: Hyperadrenocorticism
     Dosage: 2000 MILLIGRAM DAILY;
     Route: 065
     Dates: start: 201702
  12. MITOTANE [Suspect]
     Active Substance: MITOTANE
     Indication: Pituitary cancer metastatic
  13. KETOCONAZOLE [Concomitant]
     Active Substance: KETOCONAZOLE
     Indication: Hyperadrenocorticism
     Dosage: STARTED PRIOR TO BIOCHEMICAL REMISSION INDUCED BY TEMOZOLOMIDE
     Route: 065

REACTIONS (11)
  - Asthenia [Unknown]
  - Decreased appetite [Unknown]
  - Weight decreased [Unknown]
  - Thrombocytopenia [Unknown]
  - Pancytopenia [Unknown]
  - Abdominal pain [Unknown]
  - Alopecia [Unknown]
  - Hirsutism [Unknown]
  - Vertigo [Unknown]
  - Drug ineffective [Unknown]
  - Off label use [Unknown]
